FAERS Safety Report 6372521-6 (Version None)
Quarter: 2009Q3

REPORT INFORMATION
  Report Type: 
  Country: None (occurrence: None)
  Receive Date: 20090924
  Receipt Date: 20090113
  Transmission Date: 20100115
  Serious: Yes (Other)
  Sender: FDA-Public Use
  Company Number: US-ASTRAZENECA-2008UW19815

PATIENT
  Age: 16586 Day
  Sex: Male
  Weight: 67.6 kg

DRUGS (9)
  1. SEROQUEL [Suspect]
     Indication: SCHIZOPHRENIA
     Dosage: 100-400MG
     Route: 048
     Dates: start: 20030417, end: 20060715
  2. SEROQUEL [Suspect]
     Indication: DEPRESSION
     Dosage: 100-400MG
     Route: 048
     Dates: start: 20030417, end: 20060715
  3. ABILIFY [Concomitant]
     Dates: start: 20060101
  4. GEODON [Concomitant]
     Dates: start: 20060101
  5. HALDOL [Concomitant]
     Dates: start: 20050101, end: 20070101
  6. RISPERDAL [Concomitant]
     Dates: start: 20070101, end: 20080101
  7. THORAZINE [Concomitant]
     Dates: start: 19970101, end: 19980101
  8. ZYPREXA [Concomitant]
     Dates: start: 20020101
  9. REMERON [Concomitant]
     Dates: start: 20030101, end: 20080101

REACTIONS (3)
  - DIABETES MELLITUS [None]
  - HYPERTENSION [None]
  - SUICIDAL BEHAVIOUR [None]
